FAERS Safety Report 24877476 (Version 2)
Quarter: 2025Q1

REPORT INFORMATION
  Report Type: Spontaneous
  Country: ES (occurrence: ES)
  Receive Date: 20250123
  Receipt Date: 20250312
  Transmission Date: 20250409
  Serious: Yes (Hospitalization, Other)
  Sender: Kenvue
  Company Number: ES-JNJFOC-20240876045

PATIENT

DRUGS (9)
  1. LOPERAMIDE HYDROCHLORIDE [Suspect]
     Active Substance: LOPERAMIDE HYDROCHLORIDE
     Indication: Diarrhoea
     Route: 065
  2. LOPERAMIDE HYDROCHLORIDE [Suspect]
     Active Substance: LOPERAMIDE HYDROCHLORIDE
     Route: 065
  3. ABEMACICLIB [Suspect]
     Active Substance: ABEMACICLIB
     Indication: Breast cancer
     Route: 048
     Dates: start: 20240617, end: 20240802
  4. ABEMACICLIB [Suspect]
     Active Substance: ABEMACICLIB
     Route: 048
     Dates: start: 20240813
  5. ABEMACICLIB [Suspect]
     Active Substance: ABEMACICLIB
     Route: 048
  6. ABEMACICLIB [Suspect]
     Active Substance: ABEMACICLIB
     Route: 048
     Dates: start: 202411
  7. LETROZOLE [Suspect]
     Active Substance: LETROZOLE
     Indication: Product used for unknown indication
     Route: 065
     Dates: start: 2024
  8. PROBIOTICS NOS [Concomitant]
     Active Substance: PROBIOTICS NOS
     Indication: Product used for unknown indication
     Route: 065
  9. SODIUM CHLORIDE [Concomitant]
     Active Substance: SODIUM CHLORIDE
     Indication: Product used for unknown indication
     Route: 065

REACTIONS (33)
  - Abdominal pain upper [Recovered/Resolved]
  - Abdominal pain [Recovered/Resolved]
  - Hyperthyroidism [Recovering/Resolving]
  - Post procedural complication [Recovering/Resolving]
  - Migraine [Recovering/Resolving]
  - Diarrhoea [Recovered/Resolved]
  - Pyrexia [Recovering/Resolving]
  - Feeling abnormal [Recovering/Resolving]
  - Feeling cold [Recovering/Resolving]
  - Asthenia [Recovered/Resolved]
  - Dysuria [Recovering/Resolving]
  - Frequent bowel movements [Unknown]
  - Urinary tract infection [Recovering/Resolving]
  - Malaise [Recovered/Resolved]
  - Chills [Recovering/Resolving]
  - Hunger [Recovering/Resolving]
  - Dysbiosis [Recovering/Resolving]
  - Flatulence [Recovering/Resolving]
  - Nausea [Recovered/Resolved]
  - Fatigue [Recovering/Resolving]
  - Rash [Recovering/Resolving]
  - Weight decreased [Recovering/Resolving]
  - Vomiting [Recovered/Resolved]
  - Mental disorder [Recovered/Resolved]
  - Oropharyngeal discomfort [Unknown]
  - Abdominal discomfort [Recovering/Resolving]
  - Abdominal distension [Recovering/Resolving]
  - Sensitive skin [Recovering/Resolving]
  - Weight increased [Recovering/Resolving]
  - Rash pruritic [Recovering/Resolving]
  - Dysbiosis [Recovered/Resolved]
  - Weight decreased [Recovered/Resolved]
  - Decreased immune responsiveness [Recovering/Resolving]

NARRATIVE: CASE EVENT DATE: 20240601
